FAERS Safety Report 4402727-4 (Version None)
Quarter: 2004Q3

REPORT INFORMATION
  Report Type: 
  Country: None (occurrence: None)
  Receive Date: 20040721
  Receipt Date: 20030625
  Transmission Date: 20050211
  Serious: No
  Sender: FDA-Public Use
  Company Number: US-BRISTOL-MYERS SQUIBB COMPANY-12387411

PATIENT
  Age: 33 Year
  Sex: Female
  Weight: 70 kg

DRUGS (2)
  1. ESTRACE [Suspect]
     Indication: HYSTERECTOMY
     Route: 048
     Dates: start: 20030620
  2. PAXIL [Concomitant]

REACTIONS (1)
  - NAUSEA [None]
